FAERS Safety Report 23096145 (Version 6)
Quarter: 2023Q4

REPORT INFORMATION
  Report Type: Report from Study
  Country: FR (occurrence: FR)
  Receive Date: 20231023
  Receipt Date: 20231227
  Transmission Date: 20240109
  Serious: Yes (Other)
  Sender: FDA-Public Use
  Company Number: FR-TAKEDA-2023TUS093250

PATIENT
  Age: 51 Year
  Sex: Male

DRUGS (1)
  1. BRIGATINIB [Suspect]
     Active Substance: BRIGATINIB
     Indication: Lung neoplasm malignant
     Dosage: UNK
     Route: 065

REACTIONS (22)
  - Pancreatitis [Unknown]
  - Haemorrhage [Unknown]
  - Gastrooesophageal reflux disease [Unknown]
  - Constipation [Recovered/Resolved]
  - Stomatitis [Unknown]
  - Tremor [Unknown]
  - Hot flush [Unknown]
  - Palmar-plantar erythrodysaesthesia syndrome [Unknown]
  - Dysgeusia [Unknown]
  - Nausea [Unknown]
  - Dry skin [Unknown]
  - Fatigue [Not Recovered/Not Resolved]
  - Rash maculo-papular [Unknown]
  - Abdominal pain [Not Recovered/Not Resolved]
  - Epistaxis [Unknown]
  - Pruritus [Unknown]
  - Dry mouth [Unknown]
  - Oesophageal pain [Unknown]
  - Vision blurred [Unknown]
  - Decreased appetite [Unknown]
  - Myalgia [Unknown]
  - Diarrhoea [Recovered/Resolved]
